FAERS Safety Report 4866078-6 (Version None)
Quarter: 2005Q4

REPORT INFORMATION
  Report Type: 
  Country: None (occurrence: None)
  Receive Date: 20051227
  Receipt Date: 20051028
  Transmission Date: 20060501
  Serious: Yes (Life-Threatening, Hospitalization)
  Sender: FDA-Public Use
  Company Number: DE-BOEHRINGER INGELHEIM PHARMACEUTICALS, INC.-2005-DE-04562DE

PATIENT
  Sex: Female
  Weight: 58 kg

DRUGS (7)
  1. SPIRIVA [Suspect]
     Indication: CHRONIC OBSTRUCTIVE PULMONARY DISEASE
     Route: 055
  2. VIANI FORTE [Suspect]
     Route: 055
  3. THEOPHYLLINE [Suspect]
     Dosage: 2X1/DAY
  4. BISOPROLOL [Concomitant]
  5. RAMIPRIL [Concomitant]
  6. SIMVASTATIN [Concomitant]
  7. ACC [Concomitant]

REACTIONS (10)
  - ACUTE CORONARY SYNDROME [None]
  - CHEST PAIN [None]
  - CIRCULATORY COLLAPSE [None]
  - DRY MOUTH [None]
  - DRY THROAT [None]
  - FALL [None]
  - GENERAL PHYSICAL HEALTH DETERIORATION [None]
  - HYPOTENSION [None]
  - ORTHOSTATIC HYPOTENSION [None]
  - TACHYCARDIA [None]
